FAERS Safety Report 9643882 (Version 11)
Quarter: 2015Q2

REPORT INFORMATION
  Report Type: Report from Study
  Country: CA (occurrence: CA)
  Receive Date: 20131024
  Receipt Date: 20150401
  Transmission Date: 20150821
  Serious: Yes (Hospitalization, Other)
  Sender: FDA-Public Use
  Company Number: CA-ROCHE-1290796

PATIENT
  Age: 73 Year
  Sex: Female
  Weight: 66 kg

DRUGS (11)
  1. IMURAN [Concomitant]
     Active Substance: AZATHIOPRINE
     Indication: RHEUMATOID ARTHRITIS
     Dosage: STARTED OVER TWO YEARS AGO
     Route: 048
  2. OMEGA 3 [Concomitant]
     Active Substance: OMEGA-3 FATTY ACIDS
  3. DIPHENHYDRAMINE HCL [Concomitant]
     Active Substance: DIPHENHYDRAMINE HYDROCHLORIDE
     Indication: PREMEDICATION
     Route: 048
     Dates: start: 20120403
  4. RISEDRONATE [Concomitant]
     Active Substance: RISEDRONATE SODIUM
  5. RITUXAN [Suspect]
     Active Substance: RITUXIMAB
     Indication: RHEUMATOID ARTHRITIS
     Dosage: DAYS 1 AND 15
     Route: 042
     Dates: start: 20120403
  6. COUMADIN (CANADA) [Concomitant]
  7. EZETROL [Concomitant]
     Active Substance: EZETIMIBE
  8. AMLODIPINE [Concomitant]
     Active Substance: AMLODIPINE BESYLATE
  9. ACETAMINOPHEN. [Concomitant]
     Active Substance: ACETAMINOPHEN
     Indication: PREMEDICATION
     Route: 048
     Dates: start: 20120403
  10. METHYLPREDNISOLONE. [Concomitant]
     Active Substance: METHYLPREDNISOLONE
     Indication: PREMEDICATION
     Route: 042
     Dates: start: 20120403
  11. ACTONEL [Concomitant]
     Active Substance: RISEDRONATE SODIUM
     Indication: OSTEOPOROSIS
     Dosage: STARTED OVER TWO YEARS AGO
     Route: 048

REACTIONS (10)
  - Rib fracture [Unknown]
  - Gastric disorder [Unknown]
  - Oxygen saturation decreased [Unknown]
  - Oxygen saturation decreased [Unknown]
  - Lumbar vertebral fracture [Unknown]
  - Oral herpes [Unknown]
  - Body temperature decreased [Unknown]
  - Headache [Recovered/Resolved]
  - Fall [Unknown]
  - Bile duct stone [Recovered/Resolved]

NARRATIVE: CASE EVENT DATE: 20130709
